FAERS Safety Report 6573501-8 (Version None)
Quarter: 2010Q1

REPORT INFORMATION
  Report Type: 
  Country: None (occurrence: None)
  Receive Date: 20100208
  Receipt Date: 20100203
  Transmission Date: 20100710
  Serious: Yes (Life-Threatening, Hospitalization)
  Sender: FDA-Public Use
  Company Number: FR-ASTRAZENECA-2010SE04871

PATIENT
  Age: 87 Year
  Sex: Male

DRUGS (8)
  1. OMEPRAZOLE [Suspect]
     Route: 048
  2. ACTIVASE [Suspect]
     Dosage: ONCE
     Route: 042
     Dates: start: 20091210, end: 20091210
  3. TAHOR [Suspect]
     Route: 048
  4. COVERSYL [Suspect]
  5. CARDENSIEL [Suspect]
     Route: 048
  6. KARDEGIC [Suspect]
     Route: 048
  7. BETASERC [Suspect]
     Route: 048
  8. LEVOTHYROXINE SODIUM [Suspect]
     Route: 048

REACTIONS (1)
  - CEREBRAL HAEMORRHAGE [None]
